FAERS Safety Report 9422026 (Version 1)
Quarter: 2013Q3

REPORT INFORMATION
  Report Type: Spontaneous
  Country: US (occurrence: None)
  Receive Date: 20130725
  Receipt Date: 20130725
  Transmission Date: 20140515
  Serious: No
  Sender: FDA-Public Use
  Company Number: None

PATIENT
  Age: 47 Year
  Sex: Female
  Weight: 104.33 kg

DRUGS (1)
  1. BUPROPION XL [Suspect]
     Indication: MAJOR DEPRESSION
     Route: 048
     Dates: start: 20120330

REACTIONS (3)
  - Irritability [None]
  - Depression [None]
  - Condition aggravated [None]
